FAERS Safety Report 5720771-1 (Version None)
Quarter: 2008Q2

REPORT INFORMATION
  Report Type: 
  Country: None (occurrence: None)
  Receive Date: 20080429
  Receipt Date: 20080424
  Transmission Date: 20081010
  Serious: Yes (Other)
  Sender: FDA-Public Use
  Company Number: PHEH2008US01472

PATIENT
  Age: 83 Year
  Sex: Female

DRUGS (1)
  1. TEKTURNA [Suspect]
     Route: 048

REACTIONS (3)
  - NEUTROPENIA [None]
  - PANCYTOPENIA [None]
  - PLATELET COUNT DECREASED [None]
